FAERS Safety Report 5253476-4 (Version None)
Quarter: 2007Q1

REPORT INFORMATION
  Report Type: 
  Country: None (occurrence: None)
  Receive Date: 20070301
  Receipt Date: 20070222
  Transmission Date: 20070707
  Serious: Yes (Hospitalization)
  Sender: FDA-Public Use
  Company Number: US-BOEHRINGER INGELHEIM PHARMACEUTICALS, INC.-2007-BP-02544BP

PATIENT
  Age: 59 Year
  Sex: Female

DRUGS (3)
  1. MICARDIS [Suspect]
     Indication: HYPERTENSION
  2. SINUS MEDICINE [Concomitant]
  3. HERBAL SUPPLEMENT [Concomitant]

REACTIONS (1)
  - THYROID OPERATION [None]
